FAERS Safety Report 14141705 (Version 1)
Quarter: 2017Q4

REPORT INFORMATION
  Report Type: Spontaneous
  Country: US (occurrence: US)
  Receive Date: 20171029
  Receipt Date: 20171029
  Transmission Date: 20180321
  Serious: Yes (Hospitalization)
  Sender: FDA-Public Use
  Company Number: None

PATIENT
  Age: 57 Year
  Sex: Female
  Weight: 63 kg

DRUGS (8)
  1. MULTIVITAMIN [Concomitant]
     Active Substance: VITAMINS
  2. CLONAZEPAM. [Concomitant]
     Active Substance: CLONAZEPAM
  3. UBIQUINOL [Concomitant]
     Active Substance: UBIQUINOL
  4. COUMADIN [Concomitant]
     Active Substance: WARFARIN SODIUM
  5. TRINTELLIX [Suspect]
     Active Substance: VORTIOXETINE HYDROBROMIDE
     Indication: DEPRESSION
     Dosage: ?          QUANTITY:2 TABLET(S);?
     Route: 048
     Dates: start: 20161027
  6. OMEGA 3 FISH OIL [Concomitant]
     Active Substance: FISH OIL\OMEGA-3 FATTY ACIDS
  7. METOPROLOL XL [Concomitant]
     Active Substance: METOPROLOL SUCCINATE
  8. VITAMIN D3 [Concomitant]
     Active Substance: CHOLECALCIFEROL

REACTIONS (6)
  - Palpitations [None]
  - Ventricular arrhythmia [None]
  - Extrasystoles [None]
  - Ventricular extrasystoles [None]
  - Dizziness [None]
  - Electrocardiogram QT prolonged [None]

NARRATIVE: CASE EVENT DATE: 20171026
